FAERS Safety Report 9369254 (Version 2)
Quarter: 2013Q3

REPORT INFORMATION
  Report Type: Report from Study
  Country: BR (occurrence: BR)
  Receive Date: 20130626
  Receipt Date: 20130826
  Transmission Date: 20140515
  Serious: No
  Sender: FDA-Public Use
  Company Number: PHHY2013BR064325

PATIENT
  Sex: Male

DRUGS (4)
  1. RITALIN LA [Suspect]
     Indication: PSYCHOMOTOR HYPERACTIVITY
     Dosage: 10 MG, 1 CAPSULE DAILY
     Dates: end: 20130612
  2. RITALIN LA [Suspect]
     Dosage: 20 MG, ONCE/SINGLE
     Dates: start: 20130629
  3. RITALIN LA [Suspect]
     Dosage: 10 MG, 1 CAPSULE DAILY
  4. RITALINA [Suspect]
     Indication: PSYCHOMOTOR HYPERACTIVITY
     Dosage: 2 DF, 2 TABLETS DAILY
     Route: 048
     Dates: end: 201305

REACTIONS (6)
  - Lip haemorrhage [Recovered/Resolved]
  - Excessive eye blinking [Recovered/Resolved]
  - Tremor [Recovered/Resolved]
  - Insomnia [Recovered/Resolved]
  - Drug ineffective [Unknown]
  - Incorrect dose administered [Unknown]
